FAERS Safety Report 9257558 (Version 6)
Quarter: 2017Q2

REPORT INFORMATION
  Report Type: Spontaneous
  Country: US (occurrence: US)
  Receive Date: 20130426
  Receipt Date: 20170510
  Transmission Date: 20170830
  Serious: Yes (Other)
  Sender: FDA-Public Use
  Company Number: US-ASTRAZENECA-2013SE27711

PATIENT
  Age: 53 Year
  Sex: Female
  Weight: 78.5 kg

DRUGS (24)
  1. TUMS [Concomitant]
     Active Substance: CALCIUM CARBONATE
     Indication: GASTROOESOPHAGEAL REFLUX DISEASE
     Dosage: AS NEEDED
     Dates: start: 1998
  2. LIPITOR [Concomitant]
     Active Substance: ATORVASTATIN CALCIUM
  3. ALPRAZOLAM. [Concomitant]
     Active Substance: ALPRAZOLAM
     Dosage: 0.25MG UNKNOWN
     Dates: start: 20090803
  4. ESCITALOPRAM [Concomitant]
     Active Substance: ESCITALOPRAM OXALATE
     Dosage: 20.0MG UNKNOWN
     Dates: start: 20130517
  5. CEFDINIR. [Concomitant]
     Active Substance: CEFDINIR
     Dosage: 300.0MG UNKNOWN
     Dates: start: 20100426
  6. BYDUREON [Suspect]
     Active Substance: EXENATIDE
     Indication: TYPE 2 DIABETES MELLITUS
     Route: 058
     Dates: start: 20170210
  7. PRILOSEC [Suspect]
     Active Substance: OMEPRAZOLE MAGNESIUM
     Indication: GASTROOESOPHAGEAL REFLUX DISEASE
     Route: 048
     Dates: start: 1998, end: 2000
  8. PROMETHAZINE [Concomitant]
     Active Substance: PROMETHAZINE\PROMETHAZINE HYDROCHLORIDE
     Dosage: 25.0MG UNKNOWN
     Dates: start: 20090815
  9. ONDANSETRON [Concomitant]
     Active Substance: ONDANSETRON
     Dosage: 8.0MG UNKNOWN
     Dates: start: 20090824
  10. TRICOR [Concomitant]
     Active Substance: FENOFIBRATE
     Dosage: 145.0MG UNKNOWN
     Dates: start: 20120623
  11. HYDROCHLOROTHIAZIDE. [Concomitant]
     Active Substance: HYDROCHLOROTHIAZIDE
     Dosage: 25.0MG UNKNOWN
     Dates: start: 20060702
  12. ZOLPIDEM [Concomitant]
     Active Substance: ZOLPIDEM\ZOLPIDEM TARTRATE
     Dosage: 5.0MG UNKNOWN
     Dates: start: 20131217
  13. NEXIUM [Suspect]
     Active Substance: ESOMEPRAZOLE MAGNESIUM
     Indication: GASTROOESOPHAGEAL REFLUX DISEASE
     Dosage: 40.0MG UNKNOWN
     Route: 048
     Dates: start: 2016
  14. FLUCONAZOLE. [Concomitant]
     Active Substance: FLUCONAZOLE
     Dosage: 150.0MG UNKNOWN
     Dates: start: 20130108
  15. NEXIUM [Suspect]
     Active Substance: ESOMEPRAZOLE MAGNESIUM
     Indication: GASTROOESOPHAGEAL REFLUX DISEASE
     Dosage: 40.0MG UNKNOWN
     Route: 048
     Dates: start: 20081218
  16. ZETIA [Concomitant]
     Active Substance: EZETIMIBE
     Indication: BLOOD CHOLESTEROL INCREASED
  17. JANUVIA [Concomitant]
     Active Substance: SITAGLIPTIN PHOSPHATE
     Indication: DIABETES MELLITUS
  18. BISOPROLOL FUMARATE. [Concomitant]
     Active Substance: BISOPROLOL FUMARATE
     Dosage: 15.0MG UNKNOWN
     Dates: start: 20091102
  19. NEXIUM [Suspect]
     Active Substance: ESOMEPRAZOLE MAGNESIUM
     Indication: GASTROOESOPHAGEAL REFLUX DISEASE
     Route: 048
     Dates: start: 2000
  20. METFORMIN [Concomitant]
     Active Substance: METFORMIN HYDROCHLORIDE
  21. NEXIUM [Suspect]
     Active Substance: ESOMEPRAZOLE MAGNESIUM
     Indication: GASTROOESOPHAGEAL REFLUX DISEASE
     Route: 048
     Dates: start: 2004
  22. AVELOX [Concomitant]
     Active Substance: MOXIFLOXACIN HYDROCHLORIDE
     Dosage: 400.0MG UNKNOWN
     Dates: start: 20130108
  23. LOSARTAN. [Concomitant]
     Active Substance: LOSARTAN
  24. MERIDIA [Concomitant]
     Active Substance: SIBUTRAMINE HYDROCHLORIDE
     Dosage: 15.0MG UNKNOWN

REACTIONS (15)
  - Limb injury [Unknown]
  - Ligament sprain [Unknown]
  - Blood glucose increased [Unknown]
  - Cervical polyp [Unknown]
  - Tibia fracture [Unknown]
  - Bone disorder [Unknown]
  - Blood glucose abnormal [Unknown]
  - Injection site mass [Unknown]
  - Breast cancer [Unknown]
  - Lower limb fracture [Unknown]
  - Weight decreased [Unknown]
  - Fibula fracture [Unknown]
  - Osteoporosis [Unknown]
  - Diabetes mellitus [Unknown]
  - Fall [Unknown]

NARRATIVE: CASE EVENT DATE: 2002
